FAERS Safety Report 4820832-5 (Version None)
Quarter: 2005Q4

REPORT INFORMATION
  Report Type: 
  Country: None (occurrence: None)
  Receive Date: 20051103
  Receipt Date: 20051018
  Transmission Date: 20060501
  Serious: Yes (Other)
  Sender: FDA-Public Use
  Company Number: USA0510111306

PATIENT
  Age: 76 Year
  Sex: Male

DRUGS (2)
  1. FORTEO [Suspect]
     Dates: start: 20050901
  2. COUMADIN [Concomitant]

REACTIONS (2)
  - PHARMACEUTICAL PRODUCT COMPLAINT [None]
  - PROTHROMBIN TIME PROLONGED [None]
